FAERS Safety Report 12202358 (Version 1)
Quarter: 2016Q1

REPORT INFORMATION
  Report Type: Report from Study
  Country: NI (occurrence: NI)
  Receive Date: 20160322
  Receipt Date: 20160322
  Transmission Date: 20160526
  Serious: Yes (Other)
  Sender: FDA-Public Use
  Company Number: PHHY2016NI037626

PATIENT
  Sex: Female

DRUGS (1)
  1. GLIVEC [Suspect]
     Active Substance: IMATINIB MESYLATE
     Indication: GASTROINTESTINAL STROMAL TUMOUR
     Dosage: 800 MG, UNK
     Route: 065

REACTIONS (6)
  - Intestinal mass [Unknown]
  - Hepatic mass [Unknown]
  - Bladder mass [Unknown]
  - Urinary bladder haemorrhage [Unknown]
  - Pancreatic mass [Unknown]
  - General physical health deterioration [Unknown]
